FAERS Safety Report 5253015-8 (Version None)
Quarter: 2007Q1

REPORT INFORMATION
  Report Type: 
  Country: None (occurrence: None)
  Receive Date: 20070301
  Receipt Date: 20070223
  Transmission Date: 20070707
  Serious: Yes (Death, Other)
  Sender: FDA-Public Use
  Company Number: HQWYE604226OCT06

PATIENT
  Age: 75 Year
  Sex: Female

DRUGS (1)
  1. TYGACIL [Suspect]
     Indication: ABDOMINAL INFECTION
     Dosage: UNKNOWN
     Route: 042
     Dates: start: 20061001, end: 20061023

REACTIONS (2)
  - HEPATIC FAILURE [None]
  - JAUNDICE [None]
